FAERS Safety Report 9233519 (Version 1)
Quarter: 2013Q2

REPORT INFORMATION
  Report Type: Spontaneous
  Country: US (occurrence: SA)
  Receive Date: 20130416
  Receipt Date: 20130416
  Transmission Date: 20140414
  Serious: Yes (Other)
  Sender: FDA-Public Use
  Company Number: SA-BRISTOL-MYERS SQUIBB COMPANY-18748871

PATIENT
  Age: 8 Decade
  Sex: Female

DRUGS (1)
  1. WARFARIN SODIUM [Suspect]
     Dates: start: 2006

REACTIONS (3)
  - Large intestinal haemorrhage [Unknown]
  - Aortic stenosis [Unknown]
  - Lung disorder [Unknown]
